FAERS Safety Report 23405308 (Version 1)
Quarter: 2024Q1

REPORT INFORMATION
  Report Type: Spontaneous
  Country: US (occurrence: US)
  Receive Date: 20240116
  Receipt Date: 20240116
  Transmission Date: 20240409
  Serious: Yes (Other)
  Sender: FDA-Public Use
  Company Number: US-JNJFOC-20240118126

PATIENT
  Age: 66 Year
  Sex: Male

DRUGS (3)
  1. XARELTO [Interacting]
     Active Substance: RIVAROXABAN
     Indication: Thrombosis
     Route: 048
     Dates: start: 201501
  2. AMLODIPINE [Concomitant]
     Active Substance: AMLODIPINE BESYLATE
     Dates: start: 201108
  3. LISINOPRIL [Concomitant]
     Active Substance: LISINOPRIL
     Dates: start: 201108

REACTIONS (3)
  - Haemorrhoidal haemorrhage [Unknown]
  - Food interaction [Unknown]
  - Rash [Unknown]

NARRATIVE: CASE EVENT DATE: 20231201
